FAERS Safety Report 21206492 (Version 1)
Quarter: 2022Q3

REPORT INFORMATION
  Report Type: Spontaneous
  Country: US (occurrence: None)
  Receive Date: 20220811
  Receipt Date: 20220811
  Transmission Date: 20221026
  Serious: Yes (Life-Threatening, Hospitalization, Other)
  Sender: FDA-Public Use
  Company Number: None

PATIENT
  Age: 33 Year
  Sex: Female
  Weight: 62.7 kg

DRUGS (15)
  1. OLANZAPINE [Suspect]
     Active Substance: OLANZAPINE
     Indication: Anxiety
     Dosage: FREQUENCY : AS NEEDED;?
     Route: 030
     Dates: start: 20220628, end: 20220628
  2. OLANZAPINE [Suspect]
     Active Substance: OLANZAPINE
     Indication: Agitation
  3. BUPRENORPHINE [Concomitant]
     Active Substance: BUPRENORPHINE
  4. dicyclomine 20mg QID [Concomitant]
  5. ARIPIPRAZOLE [Concomitant]
     Active Substance: ARIPIPRAZOLE
  6. insulin glargine 8 units bid [Concomitant]
  7. lidocaine patch 5% daily [Concomitant]
  8. memantine 10mg bid [Concomitant]
  9. metronidazole TID [Concomitant]
  10. nortriptyline 25mg TIDo [Concomitant]
  11. ondansetron 8mg q6h prn [Concomitant]
  12. pantoprazole 40mg bid [Concomitant]
  13. prazosin 2mg qpm [Concomitant]
  14. pregabalin 200mg qpm [Concomitant]
  15. sucralfate 1gm qid [Concomitant]

REACTIONS (2)
  - Neuroleptic malignant syndrome [None]
  - Body temperature increased [None]

NARRATIVE: CASE EVENT DATE: 20220628
